FAERS Safety Report 25452761 (Version 1)
Quarter: 2025Q2

REPORT INFORMATION
  Report Type: Spontaneous
  Country: AU (occurrence: AU)
  Receive Date: 20250618
  Receipt Date: 20250618
  Transmission Date: 20250716
  Serious: Yes (Hospitalization, Other)
  Sender: SANDOZ
  Company Number: AU-JNJFOC-20250503466

PATIENT
  Age: 29 Year
  Sex: Female
  Weight: 55.3 kg

DRUGS (4)
  1. INVEGA SUSTENNA [Suspect]
     Active Substance: PALIPERIDONE PALMITATE
     Indication: Schizophrenia
     Dosage: 100 MG, Q4W
     Route: 030
     Dates: start: 20250314, end: 20250417
  2. INVEGA SUSTENNA [Suspect]
     Active Substance: PALIPERIDONE PALMITATE
     Dosage: 150 MG, Q4W
     Route: 030
     Dates: end: 20250417
  3. INVEGA SUSTENNA [Suspect]
     Active Substance: PALIPERIDONE PALMITATE
     Indication: Psychotic disorder
     Route: 065
  4. OLANZAPINE [Suspect]
     Active Substance: OLANZAPINE
     Indication: Psychotic disorder
     Route: 048
     Dates: start: 20250314, end: 20250425

REACTIONS (9)
  - Hospitalisation [Recovered/Resolved]
  - Muscle rigidity [Unknown]
  - Gait disturbance [Unknown]
  - Neck pain [Unknown]
  - Restlessness [Unknown]
  - Back pain [Unknown]
  - Tachycardia [Unknown]
  - Akathisia [Recovering/Resolving]
  - Salivary hypersecretion [Unknown]

NARRATIVE: CASE EVENT DATE: 20250414
